FAERS Safety Report 8912557 (Version 2)
Quarter: 2012Q4

REPORT INFORMATION
  Report Type: 
  Country: IT (occurrence: IT)
  Receive Date: 20121116
  Receipt Date: 20121218
  Transmission Date: 20130627
  Serious: Yes (Other)
  Sender: FDA-Public Use
  Company Number: IT-PFIZER INC-2012286821

PATIENT
  Age: 33 Year
  Sex: Male

DRUGS (7)
  1. PREGABALIN [Suspect]
     Indication: BIPOLAR DISORDER
     Dosage: 75 mg, 1x/day
  2. PREGABALIN [Suspect]
     Indication: GENERALIZED ANXIETY DISORDER
     Dosage: 75 mg, 2x/day
  3. PREGABALIN [Suspect]
     Dosage: 150 mg, 2x/day
  4. PREGABALIN [Suspect]
     Dosage: gradually increased the dosage up to 1500 mg
  5. OLANZAPINE [Concomitant]
     Indication: BIPOLAR DISORDER
     Dosage: 10 mg, 1x/day
  6. OLANZAPINE [Concomitant]
     Indication: GENERALIZED ANXIETY DISORDER
  7. CANNABIS [Concomitant]
     Dosage: saltuary 1 or 2 joint before to sleep.

REACTIONS (4)
  - Intentional drug misuse [Not Recovered/Not Resolved]
  - Overdose [Recovered/Resolved]
  - Myositis [Recovered/Resolved]
  - Drug withdrawal syndrome [Unknown]
